FAERS Safety Report 9154186 (Version 1)
Quarter: 2013Q1

REPORT INFORMATION
  Report Type: Spontaneous
  Country: GB (occurrence: None)
  Receive Date: 20130306
  Receipt Date: 20130306
  Transmission Date: 20140127
  Serious: Yes (Other)
  Sender: FDA-Public Use
  Company Number: None

PATIENT
  Sex: Male

DRUGS (1)
  1. LISTERINE TOTAL CARE SENSITIVE [Suspect]
     Indication: DENTAL DISORDER PROPHYLAXIS
     Route: 048

REACTIONS (7)
  - Insomnia [None]
  - Mouth ulceration [None]
  - Infection [None]
  - Hypophagia [None]
  - Speech disorder [None]
  - Fatigue [None]
  - Lymphadenopathy [None]
